FAERS Safety Report 18554504 (Version 1)
Quarter: 2020Q4

REPORT INFORMATION
  Report Type: Spontaneous
  Country: BR (occurrence: BR)
  Receive Date: 20201127
  Receipt Date: 20201127
  Transmission Date: 20210114
  Serious: Yes (Other)
  Sender: FDA-Public Use
  Company Number: BR-GLAXOSMITHKLINE-BR2020AMR232488

PATIENT
  Sex: Female

DRUGS (2)
  1. AEROLIN [Suspect]
     Active Substance: ALBUTEROL
     Indication: PRODUCT USED FOR UNKNOWN INDICATION
     Dosage: 2 PUFF(S), JETS
     Route: 055
  2. CLENIL [Suspect]
     Active Substance: BECLOMETHASONE DIPROPIONATE
     Indication: PRODUCT USED FOR UNKNOWN INDICATION
     Dosage: 2 PUFF(S), JETS
     Route: 055

REACTIONS (2)
  - Asthmatic crisis [Not Recovered/Not Resolved]
  - Fatigue [Not Recovered/Not Resolved]
